FAERS Safety Report 10477454 (Version 1)
Quarter: 2014Q3

REPORT INFORMATION
  Report Type: Spontaneous
  Country: US (occurrence: US)
  Receive Date: 20140926
  Receipt Date: 20140926
  Transmission Date: 20150326
  Serious: Yes (Disabling, Other)
  Sender: FDA-Public Use
  Company Number: US-JNJFOC-20140918627

PATIENT
  Age: 54 Year
  Sex: Female

DRUGS (1)
  1. LEVAQUIN [Suspect]
     Active Substance: LEVOFLOXACIN
     Indication: PHARYNGITIS STREPTOCOCCAL
     Route: 065

REACTIONS (14)
  - Panic attack [Unknown]
  - Anxiety [Unknown]
  - General physical health deterioration [Unknown]
  - Muscle spasms [Unknown]
  - Joint crepitation [Unknown]
  - Dyspnoea [Unknown]
  - Walking aid user [Unknown]
  - Fatigue [Unknown]
  - Gastrointestinal disorder [Unknown]
  - Orthodontic appliance user [Unknown]
  - Neuropathy peripheral [Unknown]
  - Dizziness [Unknown]
  - Joint swelling [Unknown]
  - Arthralgia [Unknown]
